FAERS Safety Report 11641266 (Version 3)
Quarter: 2015Q4

REPORT INFORMATION
  Report Type: Spontaneous
  Country: MX (occurrence: MX)
  Receive Date: 20151019
  Receipt Date: 20151112
  Transmission Date: 20160304
  Serious: Yes (Other)
  Sender: FDA-Public Use
  Company Number: MX-BMSGILMSD-2015-0177461

PATIENT
  Age: 37 Year
  Sex: Female

DRUGS (1)
  1. ATRIPLA [Suspect]
     Active Substance: EFAVIRENZ\EMTRICITABINE\TENOFOVIR DISOPROXIL FUMARATE
     Indication: HIV INFECTION
     Dosage: 1 DF, QD
     Route: 048
     Dates: start: 20130125, end: 201309

REACTIONS (3)
  - Virologic failure [Recovered/Resolved]
  - Drug ineffective [Recovered/Resolved]
  - Viral mutation identified [Unknown]

NARRATIVE: CASE EVENT DATE: 201307
